FAERS Safety Report 9625440 (Version 3)
Quarter: 2013Q4

REPORT INFORMATION
  Report Type: Spontaneous
  Country: JP (occurrence: JP)
  Receive Date: 20131016
  Receipt Date: 20131219
  Transmission Date: 20140711
  Serious: Yes (Death)
  Sender: FDA-Public Use
  Company Number: JP-JNJFOC-20131007503

PATIENT
  Age: 63 Year
  Sex: Male
  Weight: 50 kg

DRUGS (2)
  1. REMICADE [Suspect]
     Indication: CROHN^S DISEASE
     Route: 042
     Dates: start: 20080828
  2. REMICADE [Suspect]
     Indication: CROHN^S DISEASE
     Dosage: 19TH DOSE
     Route: 042
     Dates: start: 20110129

REACTIONS (1)
  - Mycobacterial infection [Fatal]
